FAERS Safety Report 10156029 (Version 1)
Quarter: 2014Q2

REPORT INFORMATION
  Report Type: Report from Study
  Country: US (occurrence: US)
  Receive Date: 20140506
  Receipt Date: 20140506
  Transmission Date: 20141212
  Serious: Yes (Hospitalization)
  Sender: FDA-Public Use
  Company Number: US-ABBVIE-14P-163-1231476-00

PATIENT
  Age: 58 Year
  Sex: Male
  Weight: 58.57 kg

DRUGS (10)
  1. HUMIRA [Suspect]
     Indication: CROHN^S DISEASE
     Dates: start: 2012
  2. IMURAN [Concomitant]
     Indication: CROHN^S DISEASE
  3. NORVASC [Concomitant]
     Indication: HYPERTENSION
  4. QUESTRAN [Concomitant]
     Indication: PROPHYLAXIS AGAINST DIARRHOEA
  5. BENTYL [Concomitant]
     Indication: ABDOMINAL PAIN
  6. LOMOTIL [Concomitant]
     Indication: CROHN^S DISEASE
  7. TOPROL [Concomitant]
     Indication: HYPERTENSION
  8. CELCEPT [Concomitant]
     Indication: CROHN^S DISEASE
  9. PREDNISONE [Concomitant]
     Indication: CROHN^S DISEASE
  10. TRIAMCINOLONE [Concomitant]
     Indication: ANAL INFLAMMATION

REACTIONS (2)
  - Peripheral arterial occlusive disease [Recovered/Resolved]
  - Laceration [Recovered/Resolved]
